FAERS Safety Report 12082442 (Version 1)
Quarter: 2016Q1

REPORT INFORMATION
  Report Type: Other
  Country: US (occurrence: US)
  Receive Date: 20160217
  Receipt Date: 20160217
  Transmission Date: 20160526
  Serious: No
  Sender: FDA-Public Use
  Company Number: US-JUBILANT GENERICS LIMITED-1047931

PATIENT
  Age: 35 Year
  Sex: Female
  Weight: 83.64 kg

DRUGS (1)
  1. BUPROPION (ANDA 202775) [Suspect]
     Active Substance: BUPROPION

REACTIONS (1)
  - Drug ineffective [Unknown]

NARRATIVE: CASE EVENT DATE: 20160105
